FAERS Safety Report 17517592 (Version 1)
Quarter: 2020Q1

REPORT INFORMATION
  Report Type: Spontaneous
  Country: RO (occurrence: RO)
  Receive Date: 20200309
  Receipt Date: 20200309
  Transmission Date: 20200409
  Serious: Yes (Other)
  Sender: FDA-Public Use
  Company Number: RO-PFIZER INC-2020101169

PATIENT
  Age: 55 Year
  Sex: Male

DRUGS (7)
  1. PENTOXIFYLLINE. [Suspect]
     Active Substance: PENTOXIFYLLINE
     Dosage: UNK
  2. METHYLPREDNISOLONE. [Suspect]
     Active Substance: METHYLPREDNISOLONE
     Dosage: UNK
  3. BOSENTAN. [Suspect]
     Active Substance: BOSENTAN
     Dosage: UNK
  4. METOPROLOL. [Suspect]
     Active Substance: METOPROLOL
     Dosage: UNK
  5. OMEPRAZOL [Suspect]
     Active Substance: OMEPRAZOLE
     Dosage: UNK
  6. AMLODIPINE BESILATE [Suspect]
     Active Substance: AMLODIPINE BESYLATE
     Dosage: UNK
  7. SULODEXIDA [Suspect]
     Active Substance: SULODEXIDE
     Dosage: UNK

REACTIONS (3)
  - Mitral valve prolapse [Unknown]
  - Cushing^s syndrome [Unknown]
  - Cardiometabolic syndrome [Unknown]
